FAERS Safety Report 8632127 (Version 2)
Quarter: 2012Q4

REPORT INFORMATION
  Report Type: 
  Country: FR (occurrence: FR)
  Receive Date: 20120625
  Receipt Date: 20121231
  Transmission Date: 20130627
  Serious: Yes (Other)
  Sender: FDA-Public Use
  Company Number: FR-JNJFOC-20120607745

PATIENT
  Age: 57 Year
  Sex: Female

DRUGS (5)
  1. REMICADE [Suspect]
     Indication: PSORIATIC ARTHROPATHY
     Dosage: dose: 310 to 350 mg
     Route: 042
     Dates: start: 2003, end: 200703
  2. ENBREL [Suspect]
     Indication: ANKYLOSING SPONDYLITIS
     Dosage: 1 dosage form weekly
     Route: 058
     Dates: start: 200704, end: 201203
  3. ENBREL [Suspect]
     Indication: PSORIATIC ARTHROPATHY
     Dosage: 1 dosage form weekly
     Route: 058
     Dates: start: 200704, end: 201203
  4. TERCIAN [Concomitant]
     Route: 065
  5. CYMBALTA [Concomitant]
     Route: 065

REACTIONS (1)
  - Basal cell carcinoma [Not Recovered/Not Resolved]
